FAERS Safety Report 9492462 (Version 1)
Quarter: 2013Q3

REPORT INFORMATION
  Report Type: Spontaneous
  Country: US (occurrence: US)
  Receive Date: 20130830
  Receipt Date: 20130830
  Transmission Date: 20140515
  Serious: No
  Sender: FDA-Public Use
  Company Number: US-009507513-1308USA012208

PATIENT
  Age: 29 Year
  Sex: Female

DRUGS (1)
  1. SAPHRIS [Suspect]
     Dosage: RAPID DISSOLVE
     Route: 048
     Dates: start: 2012

REACTIONS (2)
  - Dysgeusia [Unknown]
  - Product taste abnormal [Unknown]
